FAERS Safety Report 8275791-2 (Version None)
Quarter: 2012Q2

REPORT INFORMATION
  Report Type: 
  Country: None (occurrence: None)
  Receive Date: 20120410
  Receipt Date: 20120410
  Transmission Date: 20120825
  Serious: Yes (Life-Threatening, Hospitalization)
  Sender: FDA-Public Use
  Company Number: None

PATIENT
  Age: 68 Year
  Sex: Male
  Weight: 87.5 kg

DRUGS (1)
  1. FENTANYL [Suspect]
     Indication: PAIN
     Dosage: 100 MCG OTHER OTHER
     Route: 050
     Dates: start: 20110516, end: 20110731

REACTIONS (6)
  - HEART RATE INCREASED [None]
  - RESPIRATORY DEPRESSION [None]
  - SOMNOLENCE [None]
  - SNORING [None]
  - PALLOR [None]
  - HYPOXIA [None]
